FAERS Safety Report 5592849-7 (Version None)
Quarter: 2008Q1

REPORT INFORMATION
  Report Type: 
  Country: None (occurrence: None)
  Receive Date: 20080115
  Receipt Date: 20080115
  Transmission Date: 20080703
  Serious: Yes (Hospitalization)
  Sender: FDA-Public Use
  Company Number: None

PATIENT
  Sex: Female
  Weight: 16.3295 kg

DRUGS (1)
  1. OCTAGAM [Suspect]
     Indication: COMBINED IMMUNODEFICIENCY
     Dosage: 9 GRAMS Q 21 DAYS IV
     Route: 042
     Dates: start: 20071221

REACTIONS (2)
  - INFECTION [None]
  - RASH GENERALISED [None]
